FAERS Safety Report 7860021-3 (Version None)
Quarter: 2011Q4

REPORT INFORMATION
  Report Type: 
  Country: None (occurrence: None)
  Receive Date: 20111025
  Receipt Date: 20111018
  Transmission Date: 20120403
  Serious: Yes (Other)
  Sender: FDA-Public Use
  Company Number: 2011SP038085

PATIENT
  Sex: Male

DRUGS (2)
  1. ORGARAN [Suspect]
     Indication: PRODUCT USED FOR UNKNOWN INDICATION
     Dosage: IV
     Route: 042
  2. HEPARIN [Concomitant]

REACTIONS (4)
  - PLATELET COUNT DECREASED [None]
  - GENERALISED OEDEMA [None]
  - COAGULOPATHY [None]
  - DRUG INEFFECTIVE [None]
